FAERS Safety Report 5644143-3 (Version None)
Quarter: 2008Q1

REPORT INFORMATION
  Report Type: 
  Country: None (occurrence: None)
  Receive Date: 20080227
  Receipt Date: 20080215
  Transmission Date: 20080703
  Serious: Yes (Hospitalization, Other)
  Sender: FDA-Public Use
  Company Number: 163-21880-08010095

PATIENT
  Age: 75 Year
  Sex: Male
  Weight: 88.4514 kg

DRUGS (13)
  1. REVLIMID [Suspect]
     Indication: MULTIPLE MYELOMA
     Dosage: 5 MG, EVERY DAY FOR 21 DAYS, THEN OFF 7 DAYS; 10 MG,DAILY DAYS 21 DAYS OF 28 DAYS, ORAL
     Route: 048
     Dates: start: 20061026, end: 20080107
  2. REVLIMID [Suspect]
     Indication: MULTIPLE MYELOMA
     Dosage: 5 MG, EVERY DAY FOR 21 DAYS, THEN OFF 7 DAYS; 10 MG,DAILY DAYS 21 DAYS OF 28 DAYS, ORAL
     Route: 048
     Dates: start: 20080207
  3. INSULIN REGULAR PORK (INSULIN INJECTION, ISOPHANE) [Concomitant]
  4. ACYCLOVIR [Concomitant]
  5. PREVACID [Concomitant]
  6. GLIPIZIDE [Concomitant]
  7. FUROSEMIDE [Concomitant]
  8. MULTIVITAMINS (MULTIVITAMINS) (CAPSULES) [Concomitant]
  9. ALLOPURINOL (ALLOPURINOL) (TABLETS) [Concomitant]
  10. LIPITOR [Concomitant]
  11. PLAVIX [Concomitant]
  12. AREDIA [Concomitant]
  13. TOPROL XL (METOPROLOL SUCCINATE) (TABLETS) [Concomitant]

REACTIONS (6)
  - DIARRHOEA [None]
  - EPISTAXIS [None]
  - HAEMATOCRIT DECREASED [None]
  - HAEMOGLOBIN DECREASED [None]
  - MYELODYSPLASTIC SYNDROME [None]
  - PLATELET COUNT DECREASED [None]
